FAERS Safety Report 5019253-4 (Version None)
Quarter: 2006Q2

REPORT INFORMATION
  Report Type: 
  Country: None (occurrence: None)
  Receive Date: 20060606
  Receipt Date: 20060526
  Transmission Date: 20061013
  Serious: Yes (Death)
  Sender: FDA-Public Use
  Company Number: US-JNJFOC-20060403267

PATIENT
  Sex: Female
  Weight: 73.94 kg

DRUGS (4)
  1. RISPERDAL [Suspect]
     Route: 048
  2. RISPERDAL [Suspect]
     Indication: DRUG USE FOR UNKNOWN INDICATION
     Dosage: TAKEN FOR ^MANY YEARS^
     Route: 048
  3. LITHIUM CARBONATE [Concomitant]
     Route: 048
  4. LORAZEPAM [Concomitant]
     Indication: ANXIETY

REACTIONS (1)
  - ARRHYTHMIA [None]
